FAERS Safety Report 11196027 (Version 1)
Quarter: 2015Q2

REPORT INFORMATION
  Report Type: Spontaneous
  Country: AT (occurrence: AT)
  Receive Date: 20150617
  Receipt Date: 20150617
  Transmission Date: 20150821
  Serious: Yes (Life-Threatening, Hospitalization)
  Sender: FDA-Public Use
  Company Number: AT-TEVA-570149ISR

PATIENT
  Age: 21 Year
  Sex: Female
  Weight: 40 kg

DRUGS (1)
  1. FUROSEMIDE. [Suspect]
     Active Substance: FUROSEMIDE
     Indication: DRUG ABUSE
     Dosage: CHRONIC INGESTION
     Route: 048

REACTIONS (7)
  - Hypokalaemia [Recovered/Resolved]
  - Ventricular fibrillation [Recovered/Resolved]
  - Acute kidney injury [Unknown]
  - Sudden cardiac death [Unknown]
  - Rhabdomyolysis [Unknown]
  - Generalised tonic-clonic seizure [Unknown]
  - Drug abuse [Unknown]

NARRATIVE: CASE EVENT DATE: 200908
